FAERS Safety Report 7013069-5 (Version None)
Quarter: 2010Q3

REPORT INFORMATION
  Report Type: 
  Country: None (occurrence: None)
  Receive Date: 20100924
  Receipt Date: 20100914
  Transmission Date: 20110219
  Serious: Yes (Hospitalization, Other)
  Sender: FDA-Public Use
  Company Number: US-PFIZER INC-2010078460

PATIENT
  Sex: Female

DRUGS (22)
  1. SOLU-MEDROL [Suspect]
     Indication: MULTIPLE SCLEROSIS RELAPSE
     Route: 042
  2. BETASERON [Suspect]
     Indication: MULTIPLE SCLEROSIS
     Dosage: UNK
     Route: 058
     Dates: start: 20000214, end: 20040101
  3. BETASERON [Suspect]
     Indication: RELAPSING-REMITTING MULTIPLE SCLEROSIS
     Dosage: 4 MILLIONIU, UNK
     Route: 058
     Dates: start: 20100330
  4. BETASERON [Suspect]
     Dosage: UNK
     Route: 058
     Dates: end: 20100429
  5. HYZAAR [Concomitant]
     Dosage: 1 DF, UNK
  6. INDERAL [Concomitant]
     Dosage: 80 MG, UNK
  7. GABAPENTIN [Concomitant]
     Dosage: 3200 MG, UNK
  8. AMARYL [Concomitant]
     Dosage: 4 MG, UNK
     Route: 048
  9. CELEXA [Concomitant]
     Dosage: 40 MG, UNK
  10. VITAMIN D3 [Concomitant]
     Dosage: UNK
     Route: 048
  11. PRAVACHOL [Concomitant]
     Dosage: 160 MG, UNK
  12. INSULIN BOVINE [Concomitant]
     Dosage: UNK
  13. SYNTHROID [Concomitant]
     Dosage: 50 UG, UNK
  14. ZANAFLEX [Concomitant]
     Dosage: 24 MG, UNK
  15. METHOTREXATE [Concomitant]
  16. LORTAB [Concomitant]
     Dosage: 1 DF, AS NEEDED
  17. XANAX [Concomitant]
     Dosage: 6 MG, UNK
  18. PROMETHAZINE [Concomitant]
     Dosage: 25 MG, AS NEEDED
  19. ZANTAC [Concomitant]
     Dosage: 600 MG, UNK
     Route: 048
  20. VITAMINS, OTHER COMBINATIONS [Concomitant]
     Dosage: UNK
  21. VITAMINS, OTHER COMBINATIONS [Concomitant]
     Dosage: UNK
  22. CORTICOSTEROIDS [Concomitant]
     Dosage: UNK
     Route: 042
     Dates: start: 20100401

REACTIONS (18)
  - AMNESIA [None]
  - CONJUNCTIVITIS [None]
  - CONVULSION [None]
  - DECUBITUS ULCER [None]
  - DEHYDRATION [None]
  - DIASTOLIC DYSFUNCTION [None]
  - FALL [None]
  - HALLUCINATIONS, MIXED [None]
  - HEAD INJURY [None]
  - HERPES ZOSTER [None]
  - HYPERTENSIVE EMERGENCY [None]
  - HYPOPHAGIA [None]
  - JOINT INJURY [None]
  - MULTIPLE SCLEROSIS RELAPSE [None]
  - PYREXIA [None]
  - RENAL FAILURE ACUTE [None]
  - REVERSIBLE POSTERIOR LEUKOENCEPHALOPATHY SYNDROME [None]
  - URINARY TRACT INFECTION [None]
